FAERS Safety Report 4449594-0 (Version None)
Quarter: 2004Q3

REPORT INFORMATION
  Report Type: 
  Country: None (occurrence: None)
  Receive Date: 20040913
  Receipt Date: 20040907
  Transmission Date: 20050211
  Serious: Yes (Hospitalization)
  Sender: FDA-Public Use
  Company Number: GBWYE029109SEP04

PATIENT
  Age: 30 Year
  Sex: Male

DRUGS (1)
  1. ADVIL [Suspect]
     Dosage: WHEN REQUIRED, ORAL,CHRONIC USAGE
     Route: 048

REACTIONS (5)
  - EPIGASTRIC DISCOMFORT [None]
  - GASTRIC ULCER [None]
  - GASTROINTESTINAL HAEMORRHAGE [None]
  - HAEMATEMESIS [None]
  - OESOPHAGITIS [None]
